APPROVED DRUG PRODUCT: HYDROCODONE BITARTRATE
Active Ingredient: HYDROCODONE BITARTRATE
Strength: 80MG
Dosage Form/Route: TABLET, EXTENDED RELEASE;ORAL
Application: A208269 | Product #005 | TE Code: AB
Applicant: ALVOGEN INC
Approved: Mar 1, 2021 | RLD: No | RS: No | Type: RX